FAERS Safety Report 23410917 (Version 1)
Quarter: 2024Q1

REPORT INFORMATION
  Report Type: Spontaneous
  Country: CN (occurrence: None)
  Receive Date: 20240117
  Receipt Date: 20240117
  Transmission Date: 20240410
  Serious: Yes (Life-Threatening, Other)
  Sender: FDA-Public Use
  Company Number: 2024A006525

PATIENT
  Age: 37 Year
  Sex: Female

DRUGS (1)
  1. QUETIAPINE [Suspect]
     Active Substance: QUETIAPINE
     Indication: Schizophrenia
     Dosage: 300 MG INTERMITTENTLY EVERY NIGHT
     Route: 048

REACTIONS (6)
  - Suicide attempt [Unknown]
  - Intentional self-injury [Unknown]
  - Pelvic fracture [Recovered/Resolved]
  - Spinal fracture [Recovered/Resolved]
  - Tibia fracture [Recovered/Resolved]
  - Inappropriate schedule of product administration [Unknown]
